FAERS Safety Report 15423448 (Version 1)
Quarter: 2018Q3

REPORT INFORMATION
  Report Type: Spontaneous
  Country: US (occurrence: US)
  Receive Date: 20180918
  Receipt Date: 20180918
  Transmission Date: 20181010
  Serious: No
  Sender: FDA-Public Use
  Company Number: None

PATIENT
  Age: 56 Year
  Sex: Male

DRUGS (3)
  1. PROCRIT [Concomitant]
     Active Substance: ERYTHROPOIETIN
  2. TRUVADA [Suspect]
     Active Substance: EMTRICITABINE\TENOFOVIR DISOPROXIL FUMARATE
     Indication: HIV INFECTION
     Route: 048
     Dates: start: 2018, end: 20180914
  3. ZARXIO [Concomitant]
     Active Substance: FILGRASTIM-SNDZ

REACTIONS (8)
  - Dialysis [None]
  - Renal failure [None]
  - Infection [None]
  - Central nervous system infection [None]
  - Seizure [None]
  - Liver transplant [None]
  - Cardiac infection [None]
  - Cardiac failure [None]

NARRATIVE: CASE EVENT DATE: 20180914
